FAERS Safety Report 9284090 (Version 1)
Quarter: 2013Q2

REPORT INFORMATION
  Report Type: Spontaneous
  Country: US (occurrence: US)
  Receive Date: 20130510
  Receipt Date: 20130510
  Transmission Date: 20140414
  Serious: No
  Sender: FDA-Public Use
  Company Number: US-PFIZER INC-2013141071

PATIENT
  Sex: 0

DRUGS (3)
  1. ZYVOX [Suspect]
     Indication: STAPHYLOCOCCAL INFECTION
     Dosage: 600 MG, 2X/DAY
     Route: 042
     Dates: start: 20130428
  2. ZOSYN [Concomitant]
     Dosage: 4.5 G, 4X/DAY
     Route: 042
  3. AZITHROMYCIN [Concomitant]
     Dosage: 500 MG, ALTERNATE DAY

REACTIONS (2)
  - Nausea [Unknown]
  - Vomiting [Unknown]
